FAERS Safety Report 8516542-3 (Version None)
Quarter: 2012Q3

REPORT INFORMATION
  Report Type: 
  Country: None (occurrence: None)
  Receive Date: 20120711
  Receipt Date: 20120711
  Transmission Date: 20120928
  Serious: Yes (Hospitalization)
  Sender: FDA-Public Use
  Company Number: None

PATIENT
  Sex: Female
  Weight: 80.9 kg

DRUGS (11)
  1. AMLODIPINE [Concomitant]
  2. PRILOSEC [Concomitant]
  3. TRAMADOL HYDROCHLORIDE [Concomitant]
  4. ACTHAR [Suspect]
     Indication: RENAL FAILURE CHRONIC
     Dosage: ACTHAR 80 UNITS  TWICE A WEEK X 6MO 057 SUB Q
     Dates: start: 20120620
  5. LOVAZA [Concomitant]
  6. SPIRONOLACTONE [Concomitant]
  7. POTASSIUM CHLORIDE [Concomitant]
  8. ATENOLOL [Concomitant]
  9. CALCIUM [Concomitant]
  10. FUROSEMIDE [Concomitant]
  11. VITAMIN D [Concomitant]

REACTIONS (2)
  - HYPERTENSION [None]
  - HEADACHE [None]
